FAERS Safety Report 11049307 (Version 1)
Quarter: 2015Q2

REPORT INFORMATION
  Report Type: Other
  Country: NL (occurrence: NL)
  Receive Date: 20150420
  Receipt Date: 20150420
  Transmission Date: 20150821
  Serious: Yes (Hospitalization, Disabling)
  Sender: FDA-Public Use
  Company Number: NL-MYLANLABS-2015M1011216

PATIENT

DRUGS (1)
  1. TERBINAFINE [Suspect]
     Active Substance: TERBINAFINE
     Indication: FUNGAL INFECTION
     Dosage: 250 MG, QD (1 KEER PER DAG 1 STUK(S))
     Route: 048
     Dates: start: 20141202, end: 20141208

REACTIONS (3)
  - Mental impairment [Recovering/Resolving]
  - Pain [Recovering/Resolving]
  - Hypertension [Recovering/Resolving]

NARRATIVE: CASE EVENT DATE: 20141208
